FAERS Safety Report 7405278-8 (Version None)
Quarter: 2011Q2

REPORT INFORMATION
  Report Type: 
  Country: None (occurrence: None)
  Receive Date: 20110404
  Receipt Date: 20110326
  Transmission Date: 20111010
  Serious: Yes (Other)
  Sender: FDA-Public Use
  Company Number: CL-305-2011

PATIENT
  Age: 28 Year
  Sex: Female

DRUGS (2)
  1. LEVOFLOXACIN [Suspect]
     Indication: CYSTIC FIBROSIS
     Dosage: 500MG ONE DOSE ORAL USE
     Route: 048
  2. CIPROFLOXACIN [Suspect]
     Indication: CYSTIC FIBROSIS
     Dosage: 750MG BID ORAL USE
     Route: 048

REACTIONS (2)
  - DRUG ERUPTION [None]
  - CROSS SENSITIVITY REACTION [None]
